FAERS Safety Report 8507678-1 (Version None)
Quarter: 2012Q3

REPORT INFORMATION
  Report Type: 
  Country: None (occurrence: None)
  Receive Date: 20120713
  Receipt Date: 20120629
  Transmission Date: 20120928
  Serious: Yes (Other)
  Sender: FDA-Public Use
  Company Number: IE-009507513-1207IRL001406

PATIENT

DRUGS (7)
  1. ARCOXIA 60 MG FILM-COATED TABLETS [Concomitant]
     Dosage: UNK UNK, QD
     Dates: start: 20080301, end: 20090101
  2. FOLIC ACID [Concomitant]
     Indication: DEMENTIA
     Dosage: 5 MG, QD
     Dates: start: 20070601
  3. NU-SEALS [Concomitant]
     Indication: ANTIPLATELET THERAPY
     Dosage: 75 MG, QD
     Dates: start: 20070601
  4. ALENDRONATE SODIUM [Suspect]
     Dosage: UNK UNK,
     Route: 048
     Dates: start: 20080801, end: 20090401
  5. ALENDRONATE SODIUM [Suspect]
     Dosage: UNK UNK, QW
     Route: 048
     Dates: start: 20080801, end: 20090401
  6. CALCICHEW D3 FORTE [Concomitant]
     Indication: ROUTINE HEALTH MAINTENANCE
     Dosage: 1 DF, BID
     Dates: start: 20070601
  7. PRAVASTATIN SODIUM [Concomitant]
     Indication: BLOOD CHOLESTEROL INCREASED
     Dosage: 20 MG, QD
     Dates: start: 20070601

REACTIONS (7)
  - BACK PAIN [None]
  - PAIN IN EXTREMITY [None]
  - DYSPHAGIA [None]
  - HIP ARTHROPLASTY [None]
  - SPINAL FUSION SURGERY [None]
  - AMNESIA [None]
  - OESOPHAGEAL IRRITATION [None]
